FAERS Safety Report 8044264-4 (Version None)
Quarter: 2012Q1

REPORT INFORMATION
  Report Type: 
  Country: None (occurrence: None)
  Receive Date: 20120113
  Receipt Date: 20120110
  Transmission Date: 20120608
  Serious: No
  Sender: FDA-Public Use
  Company Number: US-BAYER-2012-003893

PATIENT
  Age: 27 Year
  Sex: Female

DRUGS (1)
  1. MIRENA [Suspect]
     Indication: CONTRACEPTION
     Dosage: 20 MCG/24HR, CONT
     Route: 015
     Dates: start: 20100801, end: 20111228

REACTIONS (9)
  - PREGNANCY WITH CONTRACEPTIVE DEVICE [None]
  - NAUSEA [None]
  - HEADACHE [None]
  - CHEST DISCOMFORT [None]
  - BACK PAIN [None]
  - PELVIC DISCOMFORT [None]
  - DEVICE EXPULSION [None]
  - DYSPAREUNIA [None]
  - FOOD CRAVING [None]
